FAERS Safety Report 6937783-2 (Version None)
Quarter: 2010Q3

REPORT INFORMATION
  Report Type: 
  Country: None (occurrence: None)
  Receive Date: 20100823
  Receipt Date: 20100818
  Transmission Date: 20110219
  Serious: Yes (Death, Other)
  Sender: FDA-Public Use
  Company Number: US-BRISTOL-MYERS SQUIBB COMPANY-15247372

PATIENT
  Age: 65 Year
  Sex: Male

DRUGS (10)
  1. CARBOPLATIN [Suspect]
     Indication: ACUTE MYELOID LEUKAEMIA
     Dosage: 19-23MAR2010,120MG/M2 OVER 120HRS ON DAYS 3-7,28D CYCLE 23-25MAR2010,DOSE REDUCED BY 30%
     Route: 042
     Dates: start: 20100319, end: 20100325
  2. TOPOTECAN [Suspect]
     Indication: ACUTE MYELOID LEUKAEMIA
     Dosage: 6DAYS,OVER 120HRS ON DAY 3-7 OF 28D CYCLE
     Route: 042
     Dates: start: 20100319, end: 20100325
  3. PIPERACILLIN AND TAZOBACTAM [Concomitant]
     Indication: ESCHERICHIA BACTERAEMIA
     Dosage: 3DAYS
     Dates: start: 20100316, end: 20100319
  4. VANCOMYCIN [Concomitant]
     Indication: ESCHERICHIA BACTERAEMIA
     Dosage: 3DAYS
     Dates: start: 20100316, end: 20100319
  5. MEROPENEM [Concomitant]
  6. LINEZOLID [Concomitant]
  7. CLINDAMYCIN [Concomitant]
  8. MICAFUNGIN SODIUM [Concomitant]
     Indication: ANTIFUNGAL PROPHYLAXIS
  9. AMBISOME [Concomitant]
     Dates: start: 20100329
  10. VORICONAZOLE [Concomitant]
     Indication: ANTIFUNGAL TREATMENT

REACTIONS (9)
  - ACTIVATED PARTIAL THROMBOPLASTIN TIME PROLONGED [None]
  - BLOOD BILIRUBIN INCREASED [None]
  - BLOOD CREATININE INCREASED [None]
  - CONFUSIONAL STATE [None]
  - HYPERNATRAEMIA [None]
  - HYPONATRAEMIA [None]
  - OEDEMA PERIPHERAL [None]
  - RASH MACULO-PAPULAR [None]
  - SEPSIS [None]
